FAERS Safety Report 9632661 (Version 1)
Quarter: 2013Q4

REPORT INFORMATION
  Report Type: Spontaneous
  Country: DE (occurrence: DE)
  Receive Date: 20131018
  Receipt Date: 20131018
  Transmission Date: 20140711
  Serious: Yes (Congenital Anomaly)
  Sender: FDA-Public Use
  Company Number: DE-GLAXOSMITHKLINE-D0081415A

PATIENT
  Age: 0 Day
  Sex: Female

DRUGS (6)
  1. LAMOTRIGINE [Suspect]
     Indication: BORDERLINE PERSONALITY DISORDER
     Dosage: 100MG PER DAY
     Route: 064
     Dates: start: 20071221, end: 20080802
  2. PAROXETIN [Suspect]
     Indication: BORDERLINE PERSONALITY DISORDER
     Dosage: 40MG PER DAY
     Route: 064
     Dates: start: 20071221, end: 20080802
  3. CHLORPROTHIXEN [Concomitant]
     Indication: DEPRESSION
     Dosage: 15MG FOUR TIMES PER DAY
     Route: 064
     Dates: start: 20071221, end: 20080201
  4. VITAMIN B12/FOLIC ACID [Concomitant]
     Indication: PROPHYLAXIS OF NEURAL TUBE DEFECT
     Route: 064
     Dates: start: 20080126, end: 20080802
  5. IODINE [Concomitant]
     Indication: PROPHYLAXIS OF NEURAL TUBE DEFECT
     Route: 064
     Dates: start: 20080126, end: 20080802
  6. ANTIBIOTICS [Concomitant]
     Route: 064

REACTIONS (4)
  - Ventricular septal defect [Unknown]
  - Atrial septal defect [Unknown]
  - Premature baby [Unknown]
  - Foetal exposure during pregnancy [Unknown]
